FAERS Safety Report 5739541-3 (Version None)
Quarter: 2008Q2

REPORT INFORMATION
  Report Type: 
  Country: None (occurrence: None)
  Receive Date: 20080515
  Receipt Date: 20080512
  Transmission Date: 20081010
  Serious: Yes (Hospitalization)
  Sender: FDA-Public Use
  Company Number: JP-BOEHRINGER INGELHEIM GMBH, GERMANY-2008-BP-04764NB

PATIENT
  Age: 66 Year
  Sex: Female

DRUGS (4)
  1. BI-SIFROL TABLETS [Suspect]
     Indication: PARKINSON'S DISEASE
     Route: 048
  2. MENESIT [Suspect]
     Indication: PARKINSON'S DISEASE
     Route: 048
  3. SYMMETREL [Suspect]
     Indication: PARKINSON'S DISEASE
     Route: 048
  4. EXCEGRAN [Suspect]
     Indication: PARKINSON'S DISEASE
     Route: 048

REACTIONS (1)
  - DERMATITIS EXFOLIATIVE [None]
